FAERS Safety Report 9376220 (Version 1)
Quarter: 2013Q3

REPORT INFORMATION
  Report Type: Spontaneous
  Country: DE (occurrence: DE)
  Receive Date: 20130701
  Receipt Date: 20130701
  Transmission Date: 20140515
  Serious: Yes (Hospitalization)
  Sender: FDA-Public Use
  Company Number: DE-009507513-1306DEU013911

PATIENT
  Sex: Male

DRUGS (2)
  1. FOSAMAX 10MG [Suspect]
     Dosage: UNK
     Route: 048
  2. [THERAPY UNSPECIFIED] [Concomitant]

REACTIONS (3)
  - Adverse event [Unknown]
  - Asthenia [Unknown]
  - Drug administration error [Unknown]
